FAERS Safety Report 23641048 (Version 1)
Quarter: 2024Q1

REPORT INFORMATION
  Report Type: Spontaneous
  Country: RU (occurrence: RU)
  Receive Date: 20240318
  Receipt Date: 20240318
  Transmission Date: 20240409
  Serious: Yes (Hospitalization)
  Sender: FDA-Public Use
  Company Number: None

PATIENT
  Age: 32 Year
  Sex: Female

DRUGS (1)
  1. IVABRADINE HYDROCHLORIDE [Suspect]
     Active Substance: IVABRADINE HYDROCHLORIDE
     Indication: Self-medication
     Dosage: UNK
     Route: 048
     Dates: start: 20240303, end: 20240303

REACTIONS (6)
  - Feeling hot [Unknown]
  - Dizziness [Unknown]
  - Nausea [Unknown]
  - Asthenia [Unknown]
  - Pruritus [Unknown]
  - Self-medication [Recovered/Resolved]

NARRATIVE: CASE EVENT DATE: 20240303
